FAERS Safety Report 8950240 (Version 1)
Quarter: 2012Q4

REPORT INFORMATION
  Report Type: 
  Country: US (occurrence: US)
  Receive Date: 20121205
  Receipt Date: 20121205
  Transmission Date: 20130627
  Serious: Yes (Other)
  Sender: FDA-Public Use
  Company Number: US-ELI_LILLY_AND_COMPANY-US201207009276

PATIENT
  Age: 72 Year
  Sex: Female

DRUGS (3)
  1. FORTEO [Suspect]
     Indication: OSTEOPOROSIS
     Dosage: 20 ug, qd
     Dates: start: 201207, end: 201209
  2. FORTEO [Suspect]
     Dosage: 20 ug, qd
     Dates: start: 201207, end: 201209
  3. INSULIN [Concomitant]

REACTIONS (10)
  - Cholelithiasis [Unknown]
  - Metastases to spine [Unknown]
  - Spinal fracture [Unknown]
  - Abdominal pain [Unknown]
  - Injection site erythema [Not Recovered/Not Resolved]
  - Sleep disorder due to a general medical condition [Unknown]
  - Feeling abnormal [Unknown]
  - Malaise [Unknown]
  - Injection site bruising [Not Recovered/Not Resolved]
  - Nausea [Unknown]
